FAERS Safety Report 5287843-X (Version None)
Quarter: 2007Q2

REPORT INFORMATION
  Report Type: 
  Country: None (occurrence: None)
  Receive Date: 20070405
  Receipt Date: 20070328
  Transmission Date: 20071010
  Serious: Yes (Other)
  Sender: FDA-Public Use
  Company Number: PHEH2007US03212

PATIENT
  Age: 38 Year
  Sex: Female

DRUGS (25)
  1. EXJADE [Suspect]
     Indication: IRON OVERLOAD
     Dosage: 1125 MG, QD
     Route: 048
     Dates: start: 20060526, end: 20070116
  2. EXJADE [Suspect]
     Dosage: 1125 MG, QD
     Route: 048
  3. DESFERAL [Suspect]
  4. SYNTHROID [Concomitant]
     Dosage: 100 MG, QD
  5. CYMBALTA [Concomitant]
     Dosage: 30 MG, QD
  6. K-DUR 10 [Concomitant]
     Dosage: 20 MEQ, PRN
  7. THIAMINE [Concomitant]
     Dosage: 1 UNK, QD
  8. FOLIC ACID [Concomitant]
     Dosage: 2 UNK, QD
  9. B12 [Concomitant]
     Dosage: EVERY 2 WEEKS
     Route: 042
  10. LASIX [Concomitant]
     Dosage: 40 MG, PRN
  11. PMS-CONJUGATED ESTROGENS [Concomitant]
     Dosage: 625 MG, QD
  12. NEURONTIN [Concomitant]
     Dosage: 3600 MG, QD
  13. LOMOTIL [Concomitant]
     Dosage: UNK, PRN
  14. PHENERGAN HCL [Concomitant]
     Dosage: UNK, PRN
  15. COMPAZINE [Concomitant]
     Dosage: UNK, PRN
  16. MIRAPEX [Concomitant]
     Dosage: 0.25 MG, QD
  17. AMITRIPTYLINE HCL [Concomitant]
     Dosage: UNK, PRN
  18. TYLENOL [Concomitant]
     Dosage: UNK, PRN
  19. TYLENOL COLD + FLU [Concomitant]
     Dosage: UNK, PRN
  20. CALCIUM CARBONATE W/VITAMIN D NOS [Concomitant]
     Dosage: 600/200
  21. REVLIMID [Concomitant]
     Dates: start: 20060601, end: 20060901
  22. BLOOD TRANSFUSION, AUXILIARY PRODUCTS [Concomitant]
     Indication: APLASTIC ANAEMIA
     Dates: start: 20041201, end: 20061001
  23. PLATELETS [Concomitant]
  24. NEUPOGEN [Concomitant]
     Indication: BONE MARROW DISORDER
     Dosage: 2X/WEEK
     Dates: start: 20050601
  25. ARANESP [Concomitant]
     Indication: BONE MARROW DISORDER
     Dosage: UNK, PRN

REACTIONS (2)
  - COPPER DEFICIENCY [None]
  - NEUROPATHY [None]
